FAERS Safety Report 9254991 (Version 1)
Quarter: 2013Q2

REPORT INFORMATION
  Report Type: Spontaneous
  Country: DE (occurrence: DE)
  Receive Date: 20130425
  Receipt Date: 20130425
  Transmission Date: 20140414
  Serious: Yes (Other)
  Sender: FDA-Public Use
  Company Number: DE-BAYER-2013-051846

PATIENT
  Sex: 0

DRUGS (1)
  1. AVALOX [Suspect]

REACTIONS (3)
  - Visual impairment [None]
  - Spinal pain [None]
  - Tendonitis [None]
